FAERS Safety Report 12254217 (Version 1)
Quarter: 2016Q2

REPORT INFORMATION
  Report Type: Spontaneous
  Country: GB (occurrence: GB)
  Receive Date: 20160411
  Receipt Date: 20160411
  Transmission Date: 20160815
  Serious: Yes (Hospitalization)
  Sender: FDA-Public Use
  Company Number: GB-ELI_LILLY_AND_COMPANY-GB201603010607

PATIENT
  Age: 22 Year
  Sex: Male

DRUGS (2)
  1. CLOZAPINE. [Concomitant]
     Active Substance: CLOZAPINE
     Dosage: UNK
  2. ZYPREXA [Suspect]
     Active Substance: OLANZAPINE
     Indication: SCHIZOPHRENIA
     Dosage: 20 MG, UNKNOWN
     Route: 048
     Dates: start: 201404

REACTIONS (19)
  - Emotional poverty [Recovering/Resolving]
  - Hypersomnia [Recovering/Resolving]
  - Peripheral swelling [Not Recovered/Not Resolved]
  - Anger [Not Recovered/Not Resolved]
  - Thirst [Not Recovered/Not Resolved]
  - Memory impairment [Unknown]
  - Food craving [Not Recovered/Not Resolved]
  - Abnormal weight gain [Not Recovered/Not Resolved]
  - Metabolic syndrome [Not Recovered/Not Resolved]
  - Aggression [Recovering/Resolving]
  - Restlessness [Recovering/Resolving]
  - Obsessive-compulsive disorder [Not Recovered/Not Resolved]
  - Hunger [Not Recovered/Not Resolved]
  - Amnesia [Recovering/Resolving]
  - Psychotic disorder [Recovering/Resolving]
  - Eye movement disorder [Recovering/Resolving]
  - Slow response to stimuli [Unknown]
  - Mania [Recovering/Resolving]
  - Illogical thinking [Not Recovered/Not Resolved]

NARRATIVE: CASE EVENT DATE: 201404
